FAERS Safety Report 7888024-3 (Version None)
Quarter: 2011Q4

REPORT INFORMATION
  Report Type: 
  Country: None (occurrence: None)
  Receive Date: 20111103
  Receipt Date: 20111020
  Transmission Date: 20120403
  Serious: Yes (Death, Hospitalization, Other)
  Sender: FDA-Public Use
  Company Number: US-ELI_LILLY_AND_COMPANY-US201108007140

PATIENT
  Sex: Female
  Weight: 73.923 kg

DRUGS (14)
  1. CELEXA [Concomitant]
     Dosage: 20 MG, UNK
     Route: 048
  2. MULTI-VITAMIN [Concomitant]
  3. NAPROXEN [Concomitant]
     Dosage: 500 MG, UNK
     Route: 048
  4. FUROSEMIDE [Concomitant]
     Dosage: 40 MG, UNK
     Route: 048
  5. EVISTA [Suspect]
     Dosage: 60 MG, UNK
     Route: 048
     Dates: start: 20090101
  6. ADVAIR DISKUS 100/50 [Concomitant]
     Dosage: UNK UG, UNK
     Route: 055
  7. LEVOTHYROXINE SODIUM [Concomitant]
     Dosage: 75 UNK, UNK
  8. POTASSIUM CHLORIDE [Concomitant]
     Dosage: 20 MEQ, UNK
     Route: 048
  9. SIMVASTATIN [Concomitant]
     Dosage: 20 MG, UNK
     Route: 048
  10. VERSED [Concomitant]
     Indication: SEDATION
  11. FENTANYL [Concomitant]
  12. AMBIEN [Concomitant]
     Dosage: 10 MG, UNK
     Route: 048
  13. SPIRIVA [Concomitant]
     Dosage: 18 UG, UNK
     Route: 055
  14. VITAMIN D [Concomitant]
     Dosage: 2000 IU, UNK

REACTIONS (7)
  - LUNG ADENOCARCINOMA STAGE I [None]
  - CHEST PAIN [None]
  - DEEP VEIN THROMBOSIS [None]
  - DEATH [None]
  - LUNG ADENOCARCINOMA RECURRENT [None]
  - DYSPNOEA [None]
  - DEPRESSED MOOD [None]
